FAERS Safety Report 14889676 (Version 1)
Quarter: 2018Q2

REPORT INFORMATION
  Report Type: Spontaneous
  Country: FR (occurrence: FR)
  Receive Date: 20180514
  Receipt Date: 20180514
  Transmission Date: 20180711
  Serious: Yes (Death)
  Sender: FDA-Public Use
  Company Number: FR-009507513-1805FRA004495

PATIENT
  Age: 78 Year
  Sex: Male
  Weight: 58 kg

DRUGS (1)
  1. KEYTRUDA [Suspect]
     Active Substance: PEMBROLIZUMAB
     Indication: BLADDER TRANSITIONAL CELL CARCINOMA
     Dosage: 200 MG, QD
     Route: 042
     Dates: start: 20180309, end: 20180309

REACTIONS (2)
  - Disseminated intravascular coagulation [Fatal]
  - Vomiting [Unknown]

NARRATIVE: CASE EVENT DATE: 201803
